FAERS Safety Report 13467602 (Version 1)
Quarter: 2017Q2

REPORT INFORMATION
  Report Type: Report from Study
  Country: US (occurrence: US)
  Receive Date: 20170421
  Receipt Date: 20170421
  Transmission Date: 20170830
  Serious: Yes (Other)
  Sender: FDA-Public Use
  Company Number: US-ELI_LILLY_AND_COMPANY-US201704005295

PATIENT
  Age: 58 Year
  Sex: Female

DRUGS (11)
  1. CHANTIX [Concomitant]
     Active Substance: VARENICLINE TARTRATE
  2. PACLITAXEL. [Concomitant]
     Active Substance: PACLITAXEL
  3. AVELOX [Concomitant]
     Active Substance: MOXIFLOXACIN HYDROCHLORIDE
  4. BID [Concomitant]
  5. OXYCODONE [Concomitant]
     Active Substance: OXYCODONE
  6. ALIMTA [Suspect]
     Active Substance: PEMETREXED DISODIUM
     Indication: PRODUCT USED FOR UNKNOWN INDICATION
     Dosage: UNK UNK, UNKNOWN
     Route: 042
     Dates: start: 201003, end: 201611
  7. CDDP [Suspect]
     Active Substance: CISPLATIN
     Indication: PRODUCT USED FOR UNKNOWN INDICATION
     Dosage: 300 MG, UNKNOWN
     Route: 065
     Dates: start: 201003, end: 201611
  8. AVASTIN                            /00848101/ [Suspect]
     Active Substance: SIMVASTATIN
     Indication: PRODUCT USED FOR UNKNOWN INDICATION
     Dosage: UNK, UNKNOWN
     Route: 065
  9. ZANTAC [Concomitant]
     Active Substance: RANITIDINE HYDROCHLORIDE
  10. NIVOLUMAB [Concomitant]
     Active Substance: NIVOLUMAB
  11. CARBOPLATIN. [Concomitant]
     Active Substance: CARBOPLATIN

REACTIONS (13)
  - Metastases to liver [Unknown]
  - Bone pain [Unknown]
  - Scleral discolouration [Unknown]
  - Metastases to spleen [Unknown]
  - Anxiety [Unknown]
  - Neuropathy peripheral [Unknown]
  - Metastases to adrenals [Unknown]
  - Bone lesion [Unknown]
  - Bone swelling [Unknown]
  - Dyskinesia [Unknown]
  - Disease progression [Unknown]
  - Cholelithiasis [Unknown]
  - Fall [Unknown]

NARRATIVE: CASE EVENT DATE: 201511
